FAERS Safety Report 5330256-2 (Version None)
Quarter: 2007Q2

REPORT INFORMATION
  Report Type: 
  Country: None (occurrence: None)
  Receive Date: 20070515
  Receipt Date: 20070507
  Transmission Date: 20071010
  Serious: Yes (Hospitalization)
  Sender: FDA-Public Use
  Company Number: 2007RL000185

PATIENT
  Age: 77 Year
  Sex: Female
  Weight: 56.6996 kg

DRUGS (2)
  1. DYNACIRC CR [Suspect]
     Indication: HYPERTENSION
     Dosage: 5 MG; PO
     Route: 048
     Dates: start: 20070228, end: 20070320
  2. MULTIPLE MEDICATIONS (NOS) [Concomitant]

REACTIONS (3)
  - ASTHENIA [None]
  - DIZZINESS [None]
  - HAEMOLYTIC ANAEMIA [None]
